FAERS Safety Report 17608852 (Version 1)
Quarter: 2020Q2

REPORT INFORMATION
  Report Type: Spontaneous
  Country: CN (occurrence: CN)
  Receive Date: 20200401
  Receipt Date: 20200401
  Transmission Date: 20200713
  Serious: Yes (Hospitalization)
  Sender: FDA-Public Use
  Company Number: CN-ROCHE-2571322

PATIENT
  Age: 35 Year
  Sex: Male
  Weight: 50 kg

DRUGS (6)
  1. SULFAMETHOXAZOLE [Concomitant]
     Active Substance: SULFAMETHOXAZOLE
     Indication: INFECTION PROPHYLAXIS
     Route: 048
     Dates: start: 20200121, end: 20200227
  2. CELLCEPT [Suspect]
     Active Substance: MYCOPHENOLATE MOFETIL\MYCOPHENOLATE MOFETIL HYDROCHLORIDE
     Indication: UNEVALUABLE EVENT
     Route: 048
     Dates: start: 20200121, end: 20200227
  3. ACICLOVIR [Concomitant]
     Active Substance: ACYCLOVIR
     Indication: UNEVALUABLE EVENT
     Route: 048
     Dates: start: 20200121, end: 20200227
  4. CICLOSPORIN [Suspect]
     Active Substance: CYCLOSPORINE
     Indication: UNEVALUABLE EVENT
     Route: 048
     Dates: start: 20200121, end: 20200227
  5. POLYENE PHOSPHATIDYLCHOLINE [Concomitant]
     Active Substance: PHOSPHOLIPID
     Indication: PROPHYLAXIS
     Route: 048
     Dates: start: 20200121, end: 20200227
  6. METHYLPREDNISOLONE. [Concomitant]
     Active Substance: METHYLPREDNISOLONE
     Indication: UNEVALUABLE EVENT
     Route: 048
     Dates: start: 20200121, end: 20200227

REACTIONS (3)
  - Nausea [Unknown]
  - Cystitis haemorrhagic [Recovered/Resolved]
  - Vomiting [Unknown]

NARRATIVE: CASE EVENT DATE: 20200205
